FAERS Safety Report 25254846 (Version 1)
Quarter: 2025Q2

REPORT INFORMATION
  Report Type: Report from Study
  Country: CA (occurrence: CA)
  Receive Date: 20250430
  Receipt Date: 20250430
  Transmission Date: 20250717
  Serious: Yes (Other)
  Sender: SANDOZ
  Company Number: CA-002147023-NVSC2019CA024547

PATIENT
  Age: 63 Year
  Sex: Male

DRUGS (4)
  1. ERELZI [Suspect]
     Active Substance: ETANERCEPT-SZZS
     Dosage: 50 MG, QW
     Route: 058
     Dates: start: 202412
  2. ERELZI [Suspect]
     Active Substance: ETANERCEPT-SZZS
     Indication: Psoriatic arthropathy
     Dosage: 50 MG, QW (PRE-FILLED SYRINGE)
     Route: 058
     Dates: start: 20191001
  3. MELOXICAM [Concomitant]
     Active Substance: MELOXICAM
     Indication: Product used for unknown indication
     Route: 065
  4. SULFASALAZINE [Concomitant]
     Active Substance: SULFASALAZINE
     Indication: Product used for unknown indication
     Route: 065
     Dates: start: 1999

REACTIONS (4)
  - Metastatic neoplasm [Unknown]
  - Musculoskeletal stiffness [Unknown]
  - Inflammation [Unknown]
  - Injection site pain [Unknown]

NARRATIVE: CASE EVENT DATE: 20191001
